FAERS Safety Report 5475015-5 (Version None)
Quarter: 2007Q3

REPORT INFORMATION
  Report Type: 
  Country: None (occurrence: None)
  Receive Date: 20070831
  Receipt Date: 20070409
  Transmission Date: 20080115
  Serious: Yes (Other)
  Sender: FDA-Public Use
  Company Number: 237696

PATIENT
  Age: 77 Year
  Sex: Male

DRUGS (6)
  1. LUCENTIS [Suspect]
     Indication: MACULAR DEGENERATION
     Dosage: INTRAVITREAL
     Dates: start: 20061101, end: 20061201
  2. AVASTIN [Suspect]
     Indication: DRUG USE FOR UNKNOWN INDICATION
     Dates: start: 20060818
  3. RANITIDINE [Concomitant]
  4. ZOCOR [Concomitant]
  5. NORVASC [Concomitant]
  6. AVAPRO [Concomitant]

REACTIONS (1)
  - CATARACT [None]
